FAERS Safety Report 5287994-X (Version None)
Quarter: 2007Q2

REPORT INFORMATION
  Report Type: 
  Country: None (occurrence: None)
  Receive Date: 20070405
  Receipt Date: 20070328
  Transmission Date: 20071010
  Serious: Yes (Other)
  Sender: FDA-Public Use
  Company Number: DE-JNJFOC-20070301524

PATIENT
  Sex: Male
  Weight: 28 kg

DRUGS (1)
  1. CONCERTA [Suspect]
     Indication: PSYCHOMOTOR HYPERACTIVITY
     Dosage: FOR 3 YEARS
     Route: 048

REACTIONS (2)
  - DECREASED APPETITE [None]
  - GROWTH RETARDATION [None]
